FAERS Safety Report 20453311 (Version 1)
Quarter: 2022Q1

REPORT INFORMATION
  Report Type: Spontaneous
  Country: NL (occurrence: NL)
  Receive Date: 20220210
  Receipt Date: 20220210
  Transmission Date: 20220423
  Serious: Yes (Hospitalization)
  Sender: FDA-Public Use
  Company Number: NL-AMGEN-NLDSP2022018106

PATIENT

DRUGS (14)
  1. TRASTUZUMAB [Suspect]
     Active Substance: TRASTUZUMAB
     Indication: Breast cancer
     Dosage: UNK
     Route: 065
  2. TRASTUZUMAB [Suspect]
     Active Substance: TRASTUZUMAB
     Indication: Carcinoid tumour pulmonary
  3. TRASTUZUMAB [Suspect]
     Active Substance: TRASTUZUMAB
     Indication: Malignant melanoma
  4. TRASTUZUMAB [Suspect]
     Active Substance: TRASTUZUMAB
     Indication: Renal cell carcinoma
  5. TRASTUZUMAB [Suspect]
     Active Substance: TRASTUZUMAB
     Indication: Carcinoid tumour of the gastrointestinal tract
  6. PEMBROLIZUMAB [Suspect]
     Active Substance: PEMBROLIZUMAB
     Route: 065
  7. NIVOLUMAB [Suspect]
     Active Substance: NIVOLUMAB
     Route: 065
  8. IPILIMUMAB [Suspect]
     Active Substance: IPILIMUMAB
     Route: 065
  9. OSIMERTINIB [Suspect]
     Active Substance: OSIMERTINIB
     Route: 065
  10. IMATINIB [Suspect]
     Active Substance: IMATINIB
     Route: 065
  11. ERLOTINIB [Suspect]
     Active Substance: ERLOTINIB
     Route: 065
  12. CABOZANTINIB [Suspect]
     Active Substance: CABOZANTINIB
     Route: 065
  13. AFATINIB [Suspect]
     Active Substance: AFATINIB
     Route: 065
  14. CRIZOTINIB [Suspect]
     Active Substance: CRIZOTINIB
     Route: 065

REACTIONS (9)
  - Colitis [Unknown]
  - Adverse drug reaction [Unknown]
  - Gastritis [Unknown]
  - Decreased appetite [Unknown]
  - Nausea [Unknown]
  - Vomiting [Unknown]
  - Diarrhoea [Unknown]
  - Weight decreased [Unknown]
  - Stomatitis [Unknown]
